FAERS Safety Report 9084872 (Version 1)
Quarter: 2013Q1

REPORT INFORMATION
  Report Type: Spontaneous
  Country: US (occurrence: US)
  Receive Date: 20130218
  Receipt Date: 20130218
  Transmission Date: 20140127
  Serious: Yes (Hospitalization)
  Sender: FDA-Public Use
  Company Number: US-BAYER-2013-019953

PATIENT
  Age: 44 Year
  Sex: Female

DRUGS (4)
  1. YASMIN [Suspect]
  2. LEVAQUIN [Concomitant]
     Dosage: 500 MG, UNK
     Route: 048
     Dates: start: 20050729
  3. BIAXIN XL [Concomitant]
     Dosage: 500 MG, UNK
     Route: 048
     Dates: start: 20050710
  4. CODAL-DH [Concomitant]
     Dosage: UNK
     Dates: start: 20050729

REACTIONS (1)
  - Deep vein thrombosis [None]
